FAERS Safety Report 6155242-4 (Version None)
Quarter: 2009Q2

REPORT INFORMATION
  Report Type: 
  Country: None (occurrence: None)
  Receive Date: 20090415
  Receipt Date: 20090407
  Transmission Date: 20091009
  Serious: Yes (Other)
  Sender: FDA-Public Use
  Company Number: PHEH2009US02100

PATIENT
  Sex: Female

DRUGS (2)
  1. STALEVO 100 [Suspect]
     Indication: PARKINSON'S DISEASE
     Dosage: 150 MG, QID
     Route: 048
     Dates: start: 20080301, end: 20081027
  2. SINEMET [Suspect]
     Dosage: 25/100 TID
     Route: 048
     Dates: start: 20081101

REACTIONS (5)
  - ANXIETY [None]
  - BIPOLAR DISORDER [None]
  - FEELING ABNORMAL [None]
  - THYROXINE FREE DECREASED [None]
  - TREMOR [None]
